FAERS Safety Report 16666742 (Version 1)
Quarter: 2019Q3

REPORT INFORMATION
  Report Type: Spontaneous
  Country: US (occurrence: US)
  Receive Date: 20190805
  Receipt Date: 20190805
  Transmission Date: 20191004
  Serious: Yes (Other)
  Sender: FDA-Public Use
  Company Number: US-ACCORD-103202

PATIENT
  Age: 48 Year
  Sex: Female

DRUGS (20)
  1. NEOSAR [Suspect]
     Active Substance: CYCLOPHOSPHAMIDE
     Indication: BREAST CANCER
  2. LATANOPROST. [Concomitant]
     Active Substance: LATANOPROST
  3. SPIRONOLACTONE. [Concomitant]
     Active Substance: SPIRONOLACTONE
  4. PARACETAMOL [Concomitant]
     Active Substance: ACETAMINOPHEN
  5. CYCLOBENZAPRINE. [Concomitant]
     Active Substance: CYCLOBENZAPRINE
  6. DOCETAXEL ACCORD [Suspect]
     Active Substance: DOCETAXEL
     Indication: BREAST CANCER
     Dosage: NUMBER OF CYCLES: 04
     Dates: start: 20151215, end: 20160202
  7. PANTOPRAZOLE [Concomitant]
     Active Substance: PANTOPRAZOLE
  8. SMZ-TMP [Concomitant]
     Active Substance: SULFAMETHOXAZOLE\TRIMETHOPRIM
  9. ACICLOVIR [Concomitant]
     Active Substance: ACYCLOVIR
  10. TORASEMIDE [Concomitant]
     Active Substance: TORSEMIDE
  11. PROAIR HFA [Concomitant]
     Active Substance: ALBUTEROL SULFATE
  12. AMOXICILLIN/CLAVULANIC ACID [Concomitant]
  13. RANITIDINE. [Concomitant]
     Active Substance: RANITIDINE
  14. LASIX [Concomitant]
     Active Substance: FUROSEMIDE
  15. CARVEDILOL/CARVEDILOL HYDROCHLODRIDE [Concomitant]
  16. LOSARTAN. [Concomitant]
     Active Substance: LOSARTAN
  17. DICLOFENAC [Concomitant]
     Active Substance: DICLOFENAC
  18. OXYCODONE/OXYCODONE HYDROCHLORIDE/OXYCODONE PECTINATE/OXYCODONE TEREPHTHALATE [Concomitant]
  19. DEXAMETHASONE. [Concomitant]
     Active Substance: DEXAMETHASONE
  20. GABAPENTIN. [Concomitant]
     Active Substance: GABAPENTIN

REACTIONS (1)
  - Alopecia [Not Recovered/Not Resolved]

NARRATIVE: CASE EVENT DATE: 20160202
